FAERS Safety Report 14150892 (Version 6)
Quarter: 2019Q2

REPORT INFORMATION
  Report Type: Report from Study
  Country: DE (occurrence: DE)
  Receive Date: 20171102
  Receipt Date: 20190403
  Transmission Date: 20190711
  Serious: Yes (Life-Threatening)
  Sender: FDA-Public Use
  Company Number: DE-ROCHE-2016689

PATIENT
  Age: 52 Year
  Sex: Female

DRUGS (4)
  1. BEVACIZUMAB. [Suspect]
     Active Substance: BEVACIZUMAB
     Indication: OVARIAN CANCER
     Dosage: LAST DOSE PRIOR TO EVENT- 26/OCT/2017
     Route: 065
     Dates: start: 20160726
  2. BLINDED OLAPARIB [Suspect]
     Active Substance: OLAPARIB
     Indication: OVARIAN CANCER
     Dosage: LAST DOSE BEFORE EVENT WAS ADMINISTERED ON- 26/OCT/2017
     Route: 065
     Dates: start: 20160726, end: 20171026
  3. BEVACIZUMAB. [Suspect]
     Active Substance: BEVACIZUMAB
     Route: 065
     Dates: start: 20170623
  4. BLINDED OLAPARIB [Suspect]
     Active Substance: OLAPARIB
     Route: 065
     Dates: start: 20171106, end: 20171125

REACTIONS (1)
  - Pancreatitis acute [Recovered/Resolved]

NARRATIVE: CASE EVENT DATE: 20171026
